FAERS Safety Report 17769222 (Version 1)
Quarter: 2020Q2

REPORT INFORMATION
  Report Type: Report from Study
  Country: US (occurrence: US)
  Receive Date: 20200512
  Receipt Date: 20200512
  Transmission Date: 20200714
  Serious: Yes (Other)
  Sender: FDA-Public Use
  Company Number: US-GLAXOSMITHKLINE-US2019TSO191239

PATIENT
  Age: 58 Year
  Sex: Female

DRUGS (2)
  1. NIRAPARIB [Suspect]
     Active Substance: NIRAPARIB
     Indication: OVARIAN CANCER
     Dosage: 200 MG, QPM WITHOUT FOOD
     Route: 048
     Dates: start: 20191011
  2. NIRAPARIB [Suspect]
     Active Substance: NIRAPARIB
     Dosage: 200 MG, QD
     Dates: end: 202004

REACTIONS (7)
  - Feeling hot [Unknown]
  - Nausea [Unknown]
  - Hot flush [Unknown]
  - Ovarian cancer recurrent [Unknown]
  - Fatigue [Unknown]
  - Adverse drug reaction [Unknown]
  - Tendonitis [Unknown]

NARRATIVE: CASE EVENT DATE: 201910
